FAERS Safety Report 19926509 (Version 2)
Quarter: 2022Q1

REPORT INFORMATION
  Report Type: Report from Study
  Country: CN (occurrence: CN)
  Receive Date: 20211006
  Receipt Date: 20220128
  Transmission Date: 20220423
  Serious: Yes (Hospitalization)
  Sender: FDA-Public Use
  Company Number: CN-SA-2019SA265785

PATIENT
  Age: 72 Year
  Sex: Male
  Weight: 69 kg

DRUGS (21)
  1. ISATUXIMAB [Suspect]
     Active Substance: ISATUXIMAB
     Indication: Plasma cell myeloma
     Dosage: 10 MG/KG, QW
     Route: 042
     Dates: start: 20190906, end: 20190906
  2. ISATUXIMAB [Suspect]
     Active Substance: ISATUXIMAB
     Dosage: 10 MG/KG, QW
     Route: 042
     Dates: start: 20190517, end: 20190517
  3. BORTEZOMIB [Suspect]
     Active Substance: BORTEZOMIB
     Indication: Plasma cell myeloma
     Dosage: 1.3 MG/M2, ON DAYS 1, 4, 8, 11, 22, 25, 29, AND 32
     Route: 058
     Dates: start: 20190916, end: 20190916
  4. BORTEZOMIB [Suspect]
     Active Substance: BORTEZOMIB
     Dosage: 1.3 MG/M2, ON DAYS 1, 4, 8, 11, 22, 25, 29, AND 32
     Route: 058
     Dates: start: 20190517, end: 20190517
  5. LENALIDOMIDE [Suspect]
     Active Substance: LENALIDOMIDE
     Indication: Plasma cell myeloma
     Dosage: 25 MG, QD
     Route: 048
     Dates: start: 20190906, end: 20190919
  6. LENALIDOMIDE [Suspect]
     Active Substance: LENALIDOMIDE
     Dosage: 25 MG, QD
     Route: 048
     Dates: start: 20190517, end: 20190523
  7. DEXAMETHASONE [Suspect]
     Active Substance: DEXAMETHASONE
     Indication: Plasma cell myeloma
     Dosage: 20 MG, DAYS 1, 2, 4, 5, 8, 9, 11, 12, 15, 22, 23, 25, 26, 29, 30, 32 AND 33
     Route: 048
     Dates: start: 20190917, end: 20190917
  8. DEXAMETHASONE [Suspect]
     Active Substance: DEXAMETHASONE
     Dosage: 20 MG, DAYS 1, 2, 4, 5, 8, 9, 11, 12, 15, 22, 23, 25, 26, 29, 30, 32 AND 33
     Route: 042
     Dates: start: 20190517, end: 20190517
  9. PROMETHAZINE [Concomitant]
     Active Substance: PROMETHAZINE HYDROCHLORIDE
     Indication: Prophylaxis
     Dosage: UNK
     Route: 048
     Dates: start: 20190906, end: 20190906
  10. ACETAMINOPHEN [Concomitant]
     Active Substance: ACETAMINOPHEN
     Indication: Prophylaxis
     Dosage: UNK UNK, 1X
     Route: 048
     Dates: start: 20190906, end: 20190906
  11. OMEPRAZOLE [Concomitant]
     Active Substance: OMEPRAZOLE
     Indication: Prophylaxis
     Dosage: UNK
     Route: 048
     Dates: start: 20190906, end: 20190906
  12. ACYCLOVIR [Concomitant]
     Active Substance: ACYCLOVIR
     Indication: Prophylaxis
     Dosage: UNK UNK, UNK
     Route: 048
     Dates: start: 20190517
  13. ASPIRIN [Concomitant]
     Active Substance: ASPIRIN
     Indication: Prophylaxis
     Dosage: UNK UNK, UNK
     Route: 048
     Dates: start: 20190517
  14. SODIUM BICARBONATE [Concomitant]
     Active Substance: SODIUM BICARBONATE
     Dosage: UNK UNK, UNK
     Route: 048
     Dates: start: 20190615
  15. MONTELUKAST [Concomitant]
     Active Substance: MONTELUKAST SODIUM
     Indication: Prophylaxis
     Dosage: UNK
     Route: 048
     Dates: start: 20190906, end: 20190906
  16. GLUCOSE;INOSINE [Concomitant]
     Dosage: UNK
     Route: 042
     Dates: start: 201909, end: 201909
  17. VITAMIN B [Concomitant]
     Active Substance: VITAMIN B
     Dosage: UNK
     Route: 048
     Dates: start: 20190924, end: 20191002
  18. COBAMAMIDE [Concomitant]
     Active Substance: COBAMAMIDE
     Dosage: UNK
     Route: 048
     Dates: start: 20190924, end: 20191002
  19. METHYLPREDNISOLONE [Concomitant]
     Active Substance: METHYLPREDNISOLONE
     Indication: Thrombocytopenia
     Dosage: UNK
     Route: 042
     Dates: start: 20190812, end: 20210812
  20. QI JIAO SHENG BAI [Concomitant]
     Dosage: UNK
     Route: 048
     Dates: start: 20210920, end: 20210920
  21. LANSOPRAZOLE ABBOTT [Concomitant]
     Indication: Prophylaxis
     Dosage: UNK
     Route: 042
     Dates: start: 20190812, end: 20210812

REACTIONS (2)
  - Thrombocytopenia [Recovered/Resolved]
  - Cerebral infarction [Recovering/Resolving]

NARRATIVE: CASE EVENT DATE: 20190919
